FAERS Safety Report 8452352 (Version 2)
Quarter: 2013Q2

REPORT INFORMATION
  Report Type: Spontaneous
  Country: US (occurrence: US)
  Receive Date: 20120312
  Receipt Date: 20130625
  Transmission Date: 20140414
  Serious: No
  Sender: FDA-Public Use
  Company Number: US-BIOGENIDEC-2012BI008215

PATIENT
  Age: 48 Year
  Sex: Female

DRUGS (1)
  1. TYSABRI [Suspect]
     Indication: MULTIPLE SCLEROSIS
     Route: 042
     Dates: start: 20120105, end: 20120911

REACTIONS (4)
  - Feeling cold [Recovered/Resolved]
  - Arthralgia [Recovered/Resolved]
  - Fibromyalgia [Not Recovered/Not Resolved]
  - Menopausal symptoms [Not Recovered/Not Resolved]
